FAERS Safety Report 15696204 (Version 4)
Quarter: 2019Q3

REPORT INFORMATION
  Report Type: Spontaneous
  Country: US (occurrence: US)
  Receive Date: 20181206
  Receipt Date: 20190911
  Transmission Date: 20191004
  Serious: No
  Sender: FDA-Public Use
  Company Number: US-ACTELION-A-NJ2018-177285

PATIENT
  Age: 65 Year
  Sex: Female
  Weight: 106.58 kg

DRUGS (17)
  1. SPIRIVA [Concomitant]
     Active Substance: TIOTROPIUM BROMIDE MONOHYDRATE
     Dosage: UNK MG, QD
  2. TRAMADOL. [Concomitant]
     Active Substance: TRAMADOL
     Dosage: 50 MG, EVERY 6 HRS
  3. OCUVITE [Concomitant]
     Active Substance: VITAMINS
     Dosage: UNK MG, QD
  4. ADCIRCA [Concomitant]
     Active Substance: TADALAFIL
     Dosage: 20 MG, BID
  5. MULTIVITAMIN [Concomitant]
     Active Substance: VITAMINS
     Dosage: UNK MG, QD
  6. LASIX [Concomitant]
     Active Substance: FUROSEMIDE
     Dosage: 40 MG, QID
  7. MAGNESIUM [Concomitant]
     Active Substance: MAGNESIUM
     Dosage: 500 MG, QD
  8. GABAPENTIN. [Concomitant]
     Active Substance: GABAPENTIN
     Dosage: 300 MG, TWO QPM
  9. SYMBICORT [Concomitant]
     Active Substance: BUDESONIDE\FORMOTEROL FUMARATE DIHYDRATE
     Dosage: 2 PUFFS EVERY MORNING
  10. ALLOPURINOL. [Concomitant]
     Active Substance: ALLOPURINOL
     Dosage: 100 MG, BID
  11. OPSUMIT [Suspect]
     Active Substance: MACITENTAN
     Indication: PULMONARY ARTERIAL HYPERTENSION
     Dosage: 10 MG, QD
     Route: 048
     Dates: start: 20180727
  12. POTASSIUM [Concomitant]
     Active Substance: POTASSIUM
     Dosage: 10 MG, QD
  13. NOVOLOG [Concomitant]
     Active Substance: INSULIN ASPART
     Dosage: 10 U, WITH SLIDING SCALE
  14. DIAMOX SEQUELS [Concomitant]
     Active Substance: ACETAZOLAMIDE
     Dosage: 250 MG, BID
  15. METFORMIN [Concomitant]
     Active Substance: METFORMIN HYDROCHLORIDE
     Dosage: 1000 MG, BID
  16. REQUIP [Concomitant]
     Active Substance: ROPINIROLE HYDROCHLORIDE
     Dosage: 1 MG, QPM
  17. LEVEMIR [Concomitant]
     Active Substance: INSULIN DETEMIR
     Dosage: 45 U, QPM

REACTIONS (9)
  - Nasopharyngitis [Unknown]
  - Headache [Unknown]
  - Oropharyngeal pain [Unknown]
  - Tendonitis [Unknown]
  - Sinusitis [Unknown]
  - Rash macular [Not Recovered/Not Resolved]
  - Urinary tract infection [Unknown]
  - Productive cough [Unknown]
  - Nasal congestion [Unknown]

NARRATIVE: CASE EVENT DATE: 20180804
